FAERS Safety Report 22153728 (Version 1)
Quarter: 2023Q1

REPORT INFORMATION
  Report Type: Spontaneous
  Country: DK (occurrence: None)
  Receive Date: 20230330
  Receipt Date: 20230330
  Transmission Date: 20230418
  Serious: Yes (Other)
  Sender: FDA-Public Use
  Company Number: None

PATIENT
  Age: 70 Year
  Sex: Female

DRUGS (6)
  1. METHOTREXATE [Suspect]
     Active Substance: METHOTREXATE
     Indication: Psoriatic arthropathy
     Dosage: STRENGTH: 2.5 MG, THIRD DOSE TAKEN ON 23-FEB-2023
     Route: 065
     Dates: start: 20230209, end: 20230223
  2. FOLIC ACID [Concomitant]
     Active Substance: FOLIC ACID
     Indication: Vitamin supplementation
     Route: 065
     Dates: start: 20230209
  3. ACETAMINOPHEN [Concomitant]
     Active Substance: ACETAMINOPHEN
     Indication: Pain
     Route: 065
     Dates: start: 20180613
  4. IBUPROFEN MEDICAL VALLEY [Concomitant]
     Indication: Pain
     Route: 065
     Dates: start: 20180613
  5. STEROIDS (NOT OTHERWISE SPECIFIED) [Concomitant]
     Indication: Psoriatic arthropathy
     Route: 030
  6. STEROIDS (NOT OTHERWISE SPECIFIED) [Concomitant]
     Route: 030
     Dates: start: 20230209

REACTIONS (6)
  - Swollen tongue [Recovered/Resolved]
  - Dyspnoea [Recovered/Resolved]
  - Angioedema [Recovered/Resolved]
  - Eye swelling [Recovered/Resolved]
  - Erythema [Recovered/Resolved]
  - Urticaria [Recovered/Resolved]

NARRATIVE: CASE EVENT DATE: 20230201
